FAERS Safety Report 25556589 (Version 1)
Quarter: 2025Q3

REPORT INFORMATION
  Report Type: Spontaneous
  Country: US (occurrence: US)
  Receive Date: 20250715
  Receipt Date: 20250715
  Transmission Date: 20251020
  Serious: Yes (Hospitalization, Other)
  Sender: NOVO NORDISK
  Company Number: US-NOVOPROD-1279178

PATIENT
  Age: 63 Year
  Sex: Male
  Weight: 114.29 kg

DRUGS (19)
  1. OZEMPIC [Suspect]
     Active Substance: SEMAGLUTIDE
     Indication: Type 2 diabetes mellitus
     Dosage: 2 MG, QW
     Route: 058
     Dates: start: 20230117, end: 20230721
  2. TRULICITY [Suspect]
     Active Substance: DULAGLUTIDE
     Indication: Type 2 diabetes mellitus
     Dosage: 0.75 MG, QW
     Dates: start: 20210910, end: 20211128
  3. TRULICITY [Suspect]
     Active Substance: DULAGLUTIDE
     Dosage: 1.5 MG, QW
     Dates: start: 20211203, end: 20220426
  4. TRULICITY [Suspect]
     Active Substance: DULAGLUTIDE
     Dosage: 3 MG, QW
     Dates: start: 20220502, end: 20220805
  5. TRULICITY [Suspect]
     Active Substance: DULAGLUTIDE
     Dosage: 4.5 MG, QW
     Dates: start: 20220812, end: 20220812
  6. GLIMEPIRIDE [Concomitant]
     Active Substance: GLIMEPIRIDE
     Indication: Type 2 diabetes mellitus
     Dates: start: 20090101
  7. TRESIBA [Concomitant]
     Active Substance: INSULIN DEGLUDEC
     Indication: Type 2 diabetes mellitus
     Dates: start: 20230208, end: 20231001
  8. JANUVIA [Concomitant]
     Active Substance: SITAGLIPTIN PHOSPHATE
     Indication: Type 2 diabetes mellitus
     Dates: start: 20220101, end: 20231101
  9. METFORMIN [Concomitant]
     Active Substance: METFORMIN HYDROCHLORIDE
     Indication: Type 2 diabetes mellitus
     Dates: start: 20220101, end: 20231101
  10. ACTOS [Concomitant]
     Active Substance: PIOGLITAZONE HYDROCHLORIDE
     Indication: Type 2 diabetes mellitus
     Dates: start: 20220304, end: 20231101
  11. LANSOPRAZOLE [Concomitant]
     Active Substance: LANSOPRAZOLE
     Indication: Abdominal discomfort
  12. LANSOPRAZOLE [Concomitant]
     Active Substance: LANSOPRAZOLE
     Indication: Gastrooesophageal reflux disease
     Dates: start: 20120823
  13. TIZANIDINE [Concomitant]
     Active Substance: TIZANIDINE
     Indication: Pain
     Dates: start: 20230620, end: 20231005
  14. TRAZODONE [Concomitant]
     Active Substance: TRAZODONE HYDROCHLORIDE
     Indication: Pain
     Dates: start: 20230620, end: 20231005
  15. PRAVASTATIN [Concomitant]
     Active Substance: PRAVASTATIN
     Indication: Blood cholesterol increased
     Dates: start: 20000101
  16. VALSARTAN [Concomitant]
     Active Substance: VALSARTAN
     Indication: Blood pressure abnormal
     Dates: start: 20220101
  17. VITAMINS [Concomitant]
     Active Substance: VITAMINS
     Indication: Vitamin supplementation
     Dates: start: 20000101
  18. TYLENOL [Concomitant]
     Active Substance: ACETAMINOPHEN
     Indication: Pain
     Dates: start: 20000101
  19. TYLENOL [Concomitant]
     Active Substance: ACETAMINOPHEN
     Indication: Cardiac disorder

REACTIONS (7)
  - Dehydration [Not Recovered/Not Resolved]
  - Impaired gastric emptying [Not Recovered/Not Resolved]
  - Nausea [Not Recovered/Not Resolved]
  - Abdominal pain [Not Recovered/Not Resolved]
  - Decreased appetite [Not Recovered/Not Resolved]
  - Dyspepsia [Not Recovered/Not Resolved]
  - Off label use [Unknown]

NARRATIVE: CASE EVENT DATE: 20230601
